FAERS Safety Report 9999094 (Version 1)
Quarter: 2014Q1

REPORT INFORMATION
  Report Type: Report from Study
  Country: US (occurrence: US)
  Receive Date: 20140312
  Receipt Date: 20140312
  Transmission Date: 20141002
  Serious: Yes (Other)
  Sender: FDA-Public Use
  Company Number: US-ROCHE-1358423

PATIENT
  Age: 76 Year
  Sex: Female
  Weight: 74.91 kg

DRUGS (5)
  1. HERCEPTIN [Suspect]
     Indication: BREAST CANCER
     Route: 042
     Dates: start: 20140212
  2. PERJETA [Suspect]
     Indication: BREAST CANCER
     Route: 042
     Dates: start: 20140212
  3. CARBOPLATIN [Concomitant]
     Indication: BREAST CANCER
     Route: 042
     Dates: start: 20140212
  4. TAXOTERE [Concomitant]
     Indication: BREAST CANCER
     Route: 042
     Dates: start: 20140212
  5. LEUKINE [Concomitant]
     Dosage: FOR 7 DAYS AFTER BREAST CANCER TREATMENT
     Route: 065
     Dates: start: 20140213

REACTIONS (6)
  - Pain [Recovered/Resolved]
  - Dry mouth [Not Recovered/Not Resolved]
  - Atrophic glossitis [Not Recovered/Not Resolved]
  - Constipation [Recovered/Resolved]
  - Diarrhoea [Recovered/Resolved]
  - Cough [Not Recovered/Not Resolved]
